FAERS Safety Report 9624767 (Version 1)
Quarter: 2013Q4

REPORT INFORMATION
  Report Type: Spontaneous
  Country: US (occurrence: US)
  Receive Date: 20131015
  Receipt Date: 20131015
  Transmission Date: 20140711
  Serious: No
  Sender: FDA-Public Use
  Company Number: US-009507513-1310USA002954

PATIENT
  Sex: Female

DRUGS (4)
  1. PROVENTIL [Suspect]
  2. PRIMATENE [Concomitant]
  3. BRONKAID [Concomitant]
  4. HALDOL [Concomitant]

REACTIONS (9)
  - Infection [Unknown]
  - Nasopharyngitis [Unknown]
  - Cough [Unknown]
  - Product quality issue [Unknown]
  - Nightmare [Unknown]
  - Visual impairment [Unknown]
  - Muscular weakness [Unknown]
  - Diabetes mellitus [Unknown]
  - Adverse event [Unknown]
